FAERS Safety Report 11754302 (Version 1)
Quarter: 2015Q4

REPORT INFORMATION
  Report Type: Spontaneous
  Country: US (occurrence: None)
  Receive Date: 20151118
  Receipt Date: 20151118
  Transmission Date: 20160304
  Serious: No
  Sender: FDA-Public Use
  Company Number: None

PATIENT
  Age: 92 Year
  Sex: Female

DRUGS (1)
  1. XALKORI [Suspect]
     Active Substance: CRIZOTINIB
     Indication: NEOPLASM MALIGNANT
     Route: 048

REACTIONS (4)
  - Blood pressure decreased [None]
  - Cerebrovascular accident [None]
  - Dementia [None]
  - Urinary incontinence [None]

NARRATIVE: CASE EVENT DATE: 20150918
